FAERS Safety Report 9508236 (Version 1)
Quarter: 2013Q3

REPORT INFORMATION
  Report Type: Spontaneous
  Country: US (occurrence: US)
  Receive Date: 20130909
  Receipt Date: 20130909
  Transmission Date: 20140515
  Serious: No
  Sender: FDA-Public Use
  Company Number: US-PFIZER INC-2013257235

PATIENT
  Age: 69 Year
  Sex: Female
  Weight: 68.03 kg

DRUGS (5)
  1. LYRICA [Suspect]
     Indication: NECK PAIN
     Dosage: 100 MG, 3X/DAY
     Dates: end: 201308
  2. LYRICA [Suspect]
     Indication: MUSCULOSKELETAL PAIN
  3. LYRICA [Suspect]
     Indication: PAIN IN EXTREMITY
  4. METFORMIN [Concomitant]
     Indication: DIABETES MELLITUS
     Dosage: 500 MG, 2X/DAY
  5. LEVEMIR [Concomitant]
     Indication: DIABETES MELLITUS
     Dosage: 15 IU, 1X/DAY

REACTIONS (1)
  - Feeling abnormal [Unknown]
